FAERS Safety Report 7861063-4 (Version None)
Quarter: 2011Q4

REPORT INFORMATION
  Report Type: 
  Country: None (occurrence: None)
  Receive Date: 20111025
  Receipt Date: 20111011
  Transmission Date: 20120403
  Serious: Yes (Hospitalization, Disabling)
  Sender: FDA-Public Use
  Company Number: TCI2011A03984

PATIENT
  Age: 63 Year
  Sex: Male

DRUGS (5)
  1. ASPIRIN [Concomitant]
  2. PLETAL [Concomitant]
  3. ACTOS [Suspect]
     Indication: DIABETES MELLITUS
     Dosage: 15 MG (15 MG, 1 IN 1 D), PER ORAL
     Route: 048
     Dates: start: 20090701, end: 20110712
  4. MUCOSTA (REBAMIPIDE) [Concomitant]
  5. GLIMICRON (GLICLAZIDE) [Concomitant]

REACTIONS (2)
  - POST PROCEDURAL URINE LEAK [None]
  - BLADDER TRANSITIONAL CELL CARCINOMA [None]
